FAERS Safety Report 17618077 (Version 1)
Quarter: 2020Q2

REPORT INFORMATION
  Report Type: Spontaneous
  Country: US (occurrence: US)
  Receive Date: 20200402
  Receipt Date: 20200402
  Transmission Date: 20200713
  Serious: No
  Sender: FDA-Public Use
  Company Number: US-MATRIXX INITIATIVES, INC.-2082262

PATIENT
  Age: 73 Year
  Sex: Female
  Weight: 76.82 kg

DRUGS (3)
  1. UNSPECIFIED ARRHYTHMIA MEDICATION [Concomitant]
  2. ZICAM COLD REMEDY [Suspect]
     Active Substance: HOMEOPATHICS\ZINC ACETATE\ZINC GLUCONATE
     Indication: NASOPHARYNGITIS
     Route: 048
     Dates: start: 20200328, end: 20200329
  3. UNSPECIFIED OTC ZINC PRODUCTS [Concomitant]

REACTIONS (2)
  - Anosmia [None]
  - Ageusia [None]
